FAERS Safety Report 4906520-5 (Version None)
Quarter: 2006Q1

REPORT INFORMATION
  Report Type: 
  Country: None (occurrence: None)
  Receive Date: 20060206
  Receipt Date: 20060124
  Transmission Date: 20060701
  Serious: Yes (Death)
  Sender: FDA-Public Use
  Company Number: MEDI-0004082

PATIENT
  Age: 5 Month
  Sex: Male

DRUGS (1)
  1. SYNAGIS (PALIVIZUMAB) [Suspect]
     Indication: ANTIVIRAL PROPHYLAXIS
     Dosage: 70  MG, 1 IN 30 D, INTRAMUSCULAR
     Route: 030
     Dates: start: 20051012, end: 20051128

REACTIONS (2)
  - RESUSCITATION [None]
  - SUDDEN INFANT DEATH SYNDROME [None]
